FAERS Safety Report 5052165-9 (Version None)
Quarter: 2006Q3

REPORT INFORMATION
  Report Type: 
  Country: None (occurrence: None)
  Receive Date: 20060713
  Receipt Date: 20060713
  Transmission Date: 20061208
  Serious: Yes (Disabling, Other)
  Sender: FDA-Public Use
  Company Number: None

PATIENT
  Sex: Female
  Weight: 79.8331 kg

DRUGS (3)
  1. SEROQUEL [Suspect]
     Indication: BIPOLAR DISORDER
     Dosage: 300 MG PER NIGHT PO
     Route: 048
  2. SEROQUEL [Suspect]
     Dosage: 75 MG PER DAY PO
     Route: 048
  3. SEREQUEL [Concomitant]

REACTIONS (1)
  - OSTEOPOROSIS [None]
